FAERS Safety Report 16455484 (Version 1)
Quarter: 2019Q2

REPORT INFORMATION
  Report Type: Spontaneous
  Country: US (occurrence: US)
  Receive Date: 20190619
  Receipt Date: 20190619
  Transmission Date: 20190711
  Serious: Yes (Other)
  Sender: FDA-Public Use
  Company Number: US-ROCHE-2162661

PATIENT
  Age: 51 Year
  Sex: Female

DRUGS (22)
  1. CEFTRIAXONE SODIUM. [Concomitant]
     Active Substance: CEFTRIAXONE SODIUM
     Route: 065
  2. VOLTAREN [DICLOFENAC] [Concomitant]
     Active Substance: DICLOFENAC SODIUM
  3. SYMBICORT [Concomitant]
     Active Substance: BUDESONIDE\FORMOTEROL FUMARATE DIHYDRATE
  4. MELOXICAM. [Concomitant]
     Active Substance: MELOXICAM
  5. AMPHETAMINE [Concomitant]
     Active Substance: AMPHETAMINE
  6. PILOCARPINE. [Concomitant]
     Active Substance: PILOCARPINE
     Route: 065
  7. METHOTREXATE. [Concomitant]
     Active Substance: METHOTREXATE
  8. CYCLOBENZAPRIN [Concomitant]
     Active Substance: CYCLOBENZAPRINE
     Route: 065
  9. CYMBALTA [Concomitant]
     Active Substance: DULOXETINE HYDROCHLORIDE
     Route: 065
  10. ALPRAZOLAM. [Concomitant]
     Active Substance: ALPRAZOLAM
  11. ACTEMRA [Suspect]
     Active Substance: TOCILIZUMAB
     Indication: RHEUMATOID ARTHRITIS
     Dosage: RESTARTED MED ABOUT 3 MONTHS AGO
     Route: 058
  12. CEFDINIR. [Concomitant]
     Active Substance: CEFDINIR
     Route: 065
  13. BACLOFEN. [Concomitant]
     Active Substance: BACLOFEN
  14. PROVENTIL HFA [SALBUTAMOL] [Concomitant]
  15. ZANAFLEX [Concomitant]
     Active Substance: TIZANIDINE HYDROCHLORIDE
  16. EFFEXOR [Concomitant]
     Active Substance: VENLAFAXINE HYDROCHLORIDE
  17. PANTOPRAZOLE SODIUM. [Concomitant]
     Active Substance: PANTOPRAZOLE SODIUM
  18. RIZATRIPTAN. [Concomitant]
     Active Substance: RIZATRIPTAN
  19. PRAMIPEXOLE DIHYDROCHLORIDE. [Concomitant]
     Active Substance: PRAMIPEXOLE DIHYDROCHLORIDE
  20. VIIBRYD [Concomitant]
     Active Substance: VILAZODONE HYDROCHLORIDE
  21. GABAPENTIN. [Concomitant]
     Active Substance: GABAPENTIN
  22. LEVOTHYROXINE SODIUM. [Concomitant]
     Active Substance: LEVOTHYROXINE SODIUM

REACTIONS (2)
  - Fatigue [Not Recovered/Not Resolved]
  - Upper respiratory tract infection [Not Recovered/Not Resolved]

NARRATIVE: CASE EVENT DATE: 20180721
